FAERS Safety Report 9559766 (Version 2)
Quarter: 2013Q3

REPORT INFORMATION
  Report Type: Spontaneous
  Country: IT (occurrence: IT)
  Receive Date: 20130927
  Receipt Date: 20130927
  Transmission Date: 20140515
  Serious: Yes (Hospitalization)
  Sender: FDA-Public Use
  Company Number: IT-TEVA-399934ISR

PATIENT
  Age: 31 Year
  Sex: Male

DRUGS (2)
  1. SERTRALINE [Suspect]
     Dosage: 7 DOSAGE FORMS DAILY;
     Route: 048
     Dates: start: 20130325, end: 20130325
  2. XANAX 0.25MG [Suspect]
     Dosage: 20 DOSAGE FORMS DAILY;
     Route: 048
     Dates: start: 20130325, end: 20130325

REACTIONS (2)
  - Vomiting [Recovering/Resolving]
  - Drug abuse [Recovering/Resolving]
